FAERS Safety Report 7450629-1 (Version None)
Quarter: 2011Q2

REPORT INFORMATION
  Report Type: 
  Country: None (occurrence: None)
  Receive Date: 20110502
  Receipt Date: 20110419
  Transmission Date: 20111010
  Serious: Yes (Other)
  Sender: FDA-Public Use
  Company Number: US-AMGEN-USASP2011021290

PATIENT
  Age: 56 Year
  Sex: Female
  Weight: 83.9 kg

DRUGS (6)
  1. METHOTREXATE [Concomitant]
     Dosage: UNK
     Route: 048
  2. METHOTREXATE [Concomitant]
     Dosage: 12.5 MG, QWK
     Route: 048
     Dates: start: 20020228
  3. ENBREL [Suspect]
     Indication: RHEUMATOID ARTHRITIS
     Dosage: 25 MG, QWK
     Route: 058
     Dates: start: 20011201
  4. FOLIC ACID [Concomitant]
     Dosage: 1 MG, QD
     Route: 048
     Dates: start: 20001201
  5. NAPROXEN [Concomitant]
     Dosage: UNK
     Dates: start: 20100719
  6. FOLIC ACID [Concomitant]
     Dosage: UNK
     Dates: start: 20030116

REACTIONS (11)
  - CONJUNCTIVITIS [None]
  - RESPIRATORY TRACT INFECTION [None]
  - INJECTION SITE ANAESTHESIA [None]
  - INJECTION SITE PAIN [None]
  - HERPES VIRUS INFECTION [None]
  - INJECTION SITE HAEMATOMA [None]
  - INFECTION [None]
  - INJECTION SITE PARAESTHESIA [None]
  - EAR INFECTION [None]
  - BURNING SENSATION [None]
  - PAIN [None]
